FAERS Safety Report 23374708 (Version 1)
Quarter: 2024Q1

REPORT INFORMATION
  Report Type: Report from Study
  Country: US (occurrence: US)
  Receive Date: 20240105
  Receipt Date: 20240105
  Transmission Date: 20240409
  Serious: Yes (Life-Threatening, Other)
  Sender: FDA-Public Use
  Company Number: US-ABBVIE-5572626

PATIENT
  Sex: Male

DRUGS (21)
  1. VENCLEXTA [Suspect]
     Active Substance: VENETOCLAX
     Indication: Chronic lymphocytic leukaemia
     Dosage: TIME INTERVAL: 0.33333333 DAYS: FORM STRENGTH: 100MG
     Route: 048
     Dates: start: 20230418
  2. SEROQUEL XR [Concomitant]
     Active Substance: QUETIAPINE FUMARATE
     Indication: Product used for unknown indication
     Dosage: FORM STRENGTH: 100MG
     Dates: start: 20231110
  3. MORPHINE [Concomitant]
     Active Substance: MORPHINE
     Indication: Product used for unknown indication
     Dosage: FORM STRENGTH: 15MG
  4. LIPITOR [Concomitant]
     Active Substance: ATORVASTATIN CALCIUM
     Indication: Product used for unknown indication
     Dosage: FORM STRENGTH: 20MG
     Route: 048
     Dates: start: 20231004
  5. TESTIM [Concomitant]
     Active Substance: TESTOSTERONE
     Indication: Product used for unknown indication
     Dosage: 50 MG/5 GRAM (1 %) GTOPEL?FREQUENCY TEXT: APPLY 10 GRAMS (2 PACKETS) TOPICALLY/DAY
     Dates: start: 20231228
  6. RUXIENCE [Concomitant]
     Active Substance: RITUXIMAB-PVVR
     Indication: Product used for unknown indication
     Dosage: 375 MG/M2=900 MG NACL INFUSION
  7. FOLBIC [Concomitant]
     Active Substance: CYANOCOBALAMIN\FOLIC ACID\PYRIDOXINE
     Indication: Product used for unknown indication
     Dosage: 2.5-25-2 MG TABLET
     Dates: start: 20230807
  8. THIAMINE [Concomitant]
     Active Substance: THIAMINE
     Indication: Product used for unknown indication
     Dosage: FORM STRENGTH: 100MG
     Dates: start: 20230807
  9. PROTONIX [Concomitant]
     Active Substance: PANTOPRAZOLE SODIUM
     Indication: Product used for unknown indication
     Dosage: FORM STRENGTH: 40MG
     Dates: start: 20230710, end: 20230908
  10. OXYCODONE [Concomitant]
     Active Substance: OXYCODONE
     Indication: Product used for unknown indication
     Dosage: FORM STRENGTH: 10MG
  11. PREGABALIN [Concomitant]
     Active Substance: PREGABALIN
     Indication: Product used for unknown indication
     Dosage: FORM STRENGTH: 150MG
  12. ZYLOPRIM [Concomitant]
     Active Substance: ALLOPURINOL
     Indication: Product used for unknown indication
     Dosage: FORM STRENGTH: 100MG
     Dates: start: 20230710
  13. LYRICA [Concomitant]
     Active Substance: PREGABALIN
     Indication: Product used for unknown indication
     Dosage: FORM STRENGTH: 150MG
     Dates: start: 20231003
  14. LAMICTAL [Concomitant]
     Active Substance: LAMOTRIGINE
     Indication: Product used for unknown indication
     Dosage: FORM STRENGTH: 200MG
     Route: 048
     Dates: start: 20231110
  15. VIAGRA [Concomitant]
     Active Substance: SILDENAFIL CITRATE
     Indication: Erectile dysfunction
     Dosage: FORM STRENGTH: 100MG
     Route: 048
     Dates: start: 20231127
  16. GLUCOPHAGE [Concomitant]
     Active Substance: METFORMIN HYDROCHLORIDE
     Indication: Product used for unknown indication
     Dosage: FORM STRENGTH: 500MG
     Route: 048
     Dates: start: 20211016
  17. ROXICODONE [Concomitant]
     Active Substance: OXYCODONE HYDROCHLORIDE
     Indication: Pain
     Dosage: FORM STRENGTH: 10MG
     Dates: start: 20231018
  18. LISINOPRIL [Concomitant]
     Active Substance: LISINOPRIL
     Indication: Product used for unknown indication
     Dosage: FORM STRENGTH: 10MG
     Route: 048
     Dates: start: 20230801
  19. SYNTHROID [Concomitant]
     Active Substance: LEVOTHYROXINE SODIUM
     Indication: Product used for unknown indication
     Dosage: FORM STRENGTH: 88MICROGRAM
     Dates: start: 20231207
  20. VITAMIN D [Concomitant]
     Active Substance: VITAMIN D NOS
     Indication: Product used for unknown indication
     Dosage: FORM STRENGTH: 1250MICROGRAM
     Route: 048
     Dates: start: 20230523
  21. LATUDA [Concomitant]
     Active Substance: LURASIDONE HYDROCHLORIDE
     Indication: Product used for unknown indication
     Dosage: FORM STRENGTH: 40MG
     Route: 048
     Dates: start: 20231110

REACTIONS (8)
  - Anaphylactic reaction [Unknown]
  - Obstructive sleep apnoea syndrome [Not Recovered/Not Resolved]
  - Androgen deficiency [Not Recovered/Not Resolved]
  - Gastrooesophageal reflux disease [Not Recovered/Not Resolved]
  - Pain [Not Recovered/Not Resolved]
  - Obesity [Not Recovered/Not Resolved]
  - Breathing-related sleep disorder [Not Recovered/Not Resolved]
  - Dizziness [Unknown]

NARRATIVE: CASE EVENT DATE: 20230101
